FAERS Safety Report 5308644-X (Version None)
Quarter: 2007Q2

REPORT INFORMATION
  Report Type: 
  Country: None (occurrence: None)
  Receive Date: 20070426
  Receipt Date: 20070417
  Transmission Date: 20071010
  Serious: Yes (Other)
  Sender: FDA-Public Use
  Company Number: CHWYE494719APR07

PATIENT
  Sex: Female

DRUGS (1)
  1. EFFEXOR [Suspect]
     Indication: DEPRESSION
     Dosage: 75 - 150 MG PER DAY
     Route: 064
     Dates: start: 20030101

REACTIONS (1)
  - FOETAL HEART RATE DISORDER [None]
